FAERS Safety Report 5658687-1 (Version None)
Quarter: 2008Q1

REPORT INFORMATION
  Report Type: 
  Country: None (occurrence: None)
  Receive Date: 20080310
  Receipt Date: 20070615
  Transmission Date: 20080703
  Serious: No
  Sender: FDA-Public Use
  Company Number: US-BAYER-200710940BCC

PATIENT
  Age: 85 Year
  Sex: Female
  Weight: 58 kg

DRUGS (3)
  1. ALEVE [Suspect]
     Indication: PAIN IN EXTREMITY
     Dosage: TOTAL DAILY DOSE: 440 MG  UNIT DOSE: 220 MG
     Route: 048
     Dates: start: 20070402, end: 20070413
  2. PREVACID [Concomitant]
     Dosage: TOTAL DAILY DOSE: 15 MG  UNIT DOSE: 15 MG
     Route: 048
  3. BENICAR [Concomitant]
     Dosage: TOTAL DAILY DOSE: 12.5 MG  UNIT DOSE: 12.5 MG
     Route: 048

REACTIONS (5)
  - ABDOMINAL DISTENSION [None]
  - EAR DISCOMFORT [None]
  - HEADACHE [None]
  - MUSCULOSKELETAL STIFFNESS [None]
  - URINARY RETENTION [None]
